FAERS Safety Report 18240427 (Version 1)
Quarter: 2020Q3

REPORT INFORMATION
  Report Type: Spontaneous
  Country: US (occurrence: US)
  Receive Date: 20200904
  Receipt Date: 20200904
  Transmission Date: 20201103
  Serious: No
  Sender: FDA-Public Use
  Company Number: None

PATIENT
  Age: 73 Year
  Sex: Male

DRUGS (2)
  1. WARFARIN (WARFARIN NA (EXELAN) 4MG TAB) [Suspect]
     Active Substance: WARFARIN SODIUM
     Dates: start: 20200802
  2. ENOXAPARIN [Suspect]
     Active Substance: ENOXAPARIN
     Route: 058
     Dates: start: 20200718

REACTIONS (4)
  - Liver function test abnormal [None]
  - Treatment failure [None]
  - Embolic stroke [None]
  - Therapy interrupted [None]

NARRATIVE: CASE EVENT DATE: 20200807
